FAERS Safety Report 13491785 (Version 1)
Quarter: 2017Q2

REPORT INFORMATION
  Report Type: Report from Study
  Country: US (occurrence: US)
  Receive Date: 20170427
  Receipt Date: 20170427
  Transmission Date: 20170830
  Serious: Yes (Life-Threatening, Other)
  Sender: FDA-Public Use
  Company Number: US-AMGEN-USASL2017063649

PATIENT
  Age: 76 Year
  Sex: Female

DRUGS (1)
  1. REPATHA [Suspect]
     Active Substance: EVOLOCUMAB
     Indication: BLOOD CHOLESTEROL INCREASED
     Dosage: 140 MG, Q2WK
     Route: 065
     Dates: end: 20170331

REACTIONS (7)
  - Pruritus generalised [Recovered/Resolved]
  - Adverse event [Recovered/Resolved]
  - Multiple allergies [Recovered/Resolved]
  - Vision blurred [Recovered/Resolved]
  - Cognitive disorder [Recovered/Resolved]
  - Abasia [Recovered/Resolved]
  - Musculoskeletal disorder [Recovered/Resolved]
